FAERS Safety Report 15665014 (Version 1)
Quarter: 2018Q4

REPORT INFORMATION
  Report Type: Spontaneous
  Country: FR (occurrence: FR)
  Receive Date: 20181128
  Receipt Date: 20181128
  Transmission Date: 20190205
  Serious: Yes (Other)
  Sender: FDA-Public Use
  Company Number: FR-SA-2018SA317187

PATIENT
  Age: 25 Year
  Sex: Male

DRUGS (4)
  1. STAMARIL [Suspect]
     Active Substance: YELLOW FEVER VIRUS STRAIN 17D-204 LIVE ANTIGEN
     Indication: IMMUNISATION
     Dosage: 1 DF
     Route: 030
     Dates: start: 20180927
  2. IMOGAM RAGE 150 UI/ML [Suspect]
     Active Substance: HUMAN RABIES VIRUS IMMUNE GLOBULIN
     Indication: PROPHYLAXIS
     Dosage: 1 DF
     Route: 030
     Dates: start: 20180927, end: 20180927
  3. ENGERIX-B [Suspect]
     Active Substance: HEPATITIS B VIRUS SUBTYPE ADW2 HBSAG SURFACE PROTEIN ANTIGEN
     Indication: IMMUNISATION
     Route: 030
     Dates: start: 20180927
  4. IXIARO [Suspect]
     Active Substance: JAPANESE ENCEPHALITIS VIRUS STRAIN NAKAYAMA-NIH ANTIGEN (FORMALDEHYDE INACTIVATED)
     Indication: IMMUNISATION
     Route: 030
     Dates: start: 20180927

REACTIONS (2)
  - Pyrexia [Recovered/Resolved]
  - Deafness transitory [Recovered/Resolved]

NARRATIVE: CASE EVENT DATE: 20181028
